FAERS Safety Report 9184313 (Version 1)
Quarter: 2013Q1

REPORT INFORMATION
  Report Type: Spontaneous
  Country: NL (occurrence: NL)
  Receive Date: 20130321
  Receipt Date: 20130321
  Transmission Date: 20140127
  Serious: Yes (Other)
  Sender: FDA-Public Use
  Company Number: NL-009507513-1303NLD007982

PATIENT
  Age: 33 Year
  Sex: Male
  Weight: 73 kg

DRUGS (2)
  1. ISENTRESS [Suspect]
     Indication: HIV INFECTION
     Dosage: 400 MG, BID
     Route: 048
     Dates: start: 200908, end: 201212
  2. TRUVADA [Interacting]
     Indication: HIV INFECTION
     Dosage: 1 DF, QD
     Dates: start: 200908, end: 201212

REACTIONS (3)
  - Myalgia [Recovering/Resolving]
  - Asthenia [Recovering/Resolving]
  - Drug interaction [Unknown]
